FAERS Safety Report 4336835-3 (Version None)
Quarter: 2004Q2

REPORT INFORMATION
  Report Type: 
  Country: None (occurrence: None)
  Receive Date: 20040408
  Receipt Date: 20040323
  Transmission Date: 20050107
  Serious: Yes (Hospitalization)
  Sender: FDA-Public Use
  Company Number: 190078

PATIENT
  Age: 54 Year
  Sex: Female
  Weight: 88.905 kg

DRUGS (6)
  1. AVONEX [Suspect]
     Indication: MULTIPLE SCLEROSIS
     Dosage: 30 MCG QW IM
     Route: 030
     Dates: start: 19970724
  2. HYDROCHLOROTHIAZIDE [Concomitant]
  3. CELEXA [Concomitant]
  4. ZANAFLEX [Concomitant]
  5. VIOXX [Concomitant]
  6. BEXTRA [Concomitant]

REACTIONS (7)
  - BLOOD PRESSURE INCREASED [None]
  - BRONCHITIS [None]
  - BRONCHOSPASM [None]
  - DEPRESSION [None]
  - DYSPNOEA [None]
  - FATIGUE [None]
  - HEART RATE DECREASED [None]
